FAERS Safety Report 7311696-9 (Version None)
Quarter: 2011Q1

REPORT INFORMATION
  Report Type: 
  Country: None (occurrence: None)
  Receive Date: 20110215
  Receipt Date: 20110215
  Transmission Date: 20110831
  Serious: No
  Sender: FDA-Public Use
  Company Number: None

PATIENT
  Age: 24 Year
  Sex: Female
  Weight: 77.1115 kg

DRUGS (4)
  1. SUBOXONE [Suspect]
     Indication: DRUG DEPENDENCE
     Dosage: 8MG/2MG FILM 1 X DAILY ORAL
     Route: 048
     Dates: start: 20101101
  2. LEXAPRO [Concomitant]
  3. VISTARIL [Concomitant]
  4. BUSPAR [Concomitant]

REACTIONS (1)
  - SOMNAMBULISM [None]
